FAERS Safety Report 5046671-0 (Version None)
Quarter: 2006Q3

REPORT INFORMATION
  Report Type: 
  Country: None (occurrence: None)
  Receive Date: 20060705
  Receipt Date: 20060705
  Transmission Date: 20061208
  Serious: Yes (Hospitalization)
  Sender: FDA-Public Use
  Company Number: None

PATIENT
  Sex: Female

DRUGS (8)
  1. NICODERM CQ [Suspect]
     Indication: SMOKING CESSATION THERAPY
     Dosage: 14 + 7 MG 1/DAY TRANSDERMAL
     Route: 062
     Dates: start: 20040212, end: 20040609
  2. PAXIL [Concomitant]
  3. SYNTHROID [Concomitant]
  4. ZYPREXA [Concomitant]
  5. TOPAMAX [Concomitant]
  6. KLONIPIN [Concomitant]
  7. NEXIUM [Concomitant]
  8. PROVIGIL [Concomitant]

REACTIONS (1)
  - RESPIRATORY DISTRESS [None]
